FAERS Safety Report 5944643-2 (Version None)
Quarter: 2008Q4

REPORT INFORMATION
  Report Type: 
  Country: None (occurrence: None)
  Receive Date: 20081107
  Receipt Date: 20081028
  Transmission Date: 20090506
  Serious: Yes (Hospitalization, Disabling)
  Sender: FDA-Public Use
  Company Number: US-JNJFOC-20081007369

PATIENT
  Age: 85 Year
  Sex: Female
  Weight: 45.36 kg

DRUGS (8)
  1. ULTRAM ER [Suspect]
     Route: 048
  2. ULTRAM ER [Suspect]
     Indication: ARTHRITIS
     Route: 048
  3. ULTRACET [Suspect]
     Route: 048
  4. ULTRACET [Suspect]
     Indication: ARTHRITIS
     Dosage: AS NEEDED
     Route: 048
  5. NAPROXEN SODIUM [Concomitant]
     Indication: ARTHRITIS
     Route: 048
  6. LOPRESSOR [Concomitant]
     Indication: HYPERTENSION
     Route: 048
  7. BENAZEPRIL HYDROCHLORIDE [Concomitant]
     Indication: HYPERTENSION
     Route: 048
  8. ZOCOR [Concomitant]
     Indication: BLOOD CHOLESTEROL
     Route: 048

REACTIONS (10)
  - ASTHENIA [None]
  - DEHYDRATION [None]
  - DEPENDENCE [None]
  - DRUG WITHDRAWAL SYNDROME [None]
  - FAILURE TO THRIVE [None]
  - HALLUCINATION [None]
  - INSOMNIA [None]
  - MUSCLE DISORDER [None]
  - SOCIAL AVOIDANT BEHAVIOUR [None]
  - SUICIDAL IDEATION [None]
